FAERS Safety Report 7879848-7 (Version None)
Quarter: 2011Q4

REPORT INFORMATION
  Report Type: 
  Country: None (occurrence: None)
  Receive Date: 20111101
  Receipt Date: 20111020
  Transmission Date: 20120403
  Serious: Yes (Hospitalization, Other)
  Sender: FDA-Public Use
  Company Number: US-ROCHE-1005947

PATIENT

DRUGS (5)
  1. CARBOPLATIN [Concomitant]
     Indication: NON-SMALL CELL LUNG CANCER
  2. PEMETREXED [Suspect]
     Indication: NON-SMALL CELL LUNG CANCER
  3. TARCEVA [Suspect]
     Indication: NON-SMALL CELL LUNG CANCER
  4. AVASTIN [Suspect]
     Indication: NON-SMALL CELL LUNG CANCER
  5. TAXOL [Concomitant]

REACTIONS (6)
  - HEADACHE [None]
  - FALL [None]
  - LEUKODYSTROPHY [None]
  - DIPLOPIA [None]
  - GAIT DISTURBANCE [None]
  - LEUKOENCEPHALOPATHY [None]
